FAERS Safety Report 10903803 (Version 2)
Quarter: 2015Q2

REPORT INFORMATION
  Report Type: Spontaneous
  Country: JP (occurrence: None)
  Receive Date: 20150306
  Receipt Date: 20150507
  Transmission Date: 20150821
  Serious: Yes (Death, Other)
  Sender: FDA-Public Use
  Company Number: 2015-10799

PATIENT
  Age: 81 Year
  Sex: Male

DRUGS (3)
  1. LUCENTIS [Suspect]
     Active Substance: RANIBIZUMAB
     Indication: PRODUCT USED FOR UNKNOWN INDICATION
     Route: 031
     Dates: start: 20100202, end: 20100202
  2. CALCIUM CHANNEL BLOCKERS (CALCIUM CHANNEL ANTAGONIST) [Concomitant]
  3. EYLEA [Suspect]
     Active Substance: AFLIBERCEPT
     Indication: AGE-RELATED MACULAR DEGENERATION
     Route: 031
     Dates: start: 201309, end: 201401

REACTIONS (3)
  - Cardiac failure [None]
  - Inappropriate schedule of drug administration [None]
  - Myocardial ischaemia [None]

NARRATIVE: CASE EVENT DATE: 20150128
